FAERS Safety Report 12355754 (Version 1)
Quarter: 2016Q2

REPORT INFORMATION
  Report Type: Spontaneous
  Country: US (occurrence: None)
  Receive Date: 20160510
  Receipt Date: 20160510
  Transmission Date: 20160815
  Serious: Yes (Life-Threatening)
  Sender: FDA-Public Use
  Company Number: None

PATIENT
  Sex: Female
  Weight: 72.58 kg

DRUGS (1)
  1. NAPROXEN PILLS [Suspect]
     Active Substance: NAPROXEN
     Indication: PAIN

REACTIONS (1)
  - Renal failure [None]

NARRATIVE: CASE EVENT DATE: 2013
